FAERS Safety Report 12740852 (Version 1)
Quarter: 2016Q3

REPORT INFORMATION
  Report Type: Spontaneous
  Country: US (occurrence: US)
  Receive Date: 20160914
  Receipt Date: 20160914
  Transmission Date: 20161109
  Serious: No
  Sender: FDA-Public Use
  Company Number: US-TEVA-665021USA

PATIENT
  Sex: Male

DRUGS (9)
  1. HYDROCODONE [Concomitant]
     Active Substance: HYDROCODONE
  2. FLUOXETINE [Suspect]
     Active Substance: FLUOXETINE HYDROCHLORIDE
  3. IRON [Concomitant]
     Active Substance: IRON
  4. FLOMAX [Concomitant]
     Active Substance: TAMSULOSIN HYDROCHLORIDE
  5. MVI [Concomitant]
     Active Substance: VITAMINS
  6. FOLIC ACID. [Concomitant]
     Active Substance: FOLIC ACID
  7. SYNTHROID [Concomitant]
     Active Substance: LEVOTHYROXINE SODIUM
  8. PEPCID [Concomitant]
     Active Substance: FAMOTIDINE
  9. POTASSIUM [Concomitant]
     Active Substance: POTASSIUM

REACTIONS (4)
  - Rotator cuff syndrome [Recovering/Resolving]
  - Decubitus ulcer [Recovering/Resolving]
  - Diarrhoea [Recovering/Resolving]
  - Post procedural infection [Recovering/Resolving]
